FAERS Safety Report 5146446-8 (Version None)
Quarter: 2006Q4

REPORT INFORMATION
  Report Type: 
  Country: None (occurrence: None)
  Receive Date: 20061102
  Receipt Date: 20061019
  Transmission Date: 20070319
  Serious: Yes (Hospitalization, Other)
  Sender: FDA-Public Use
  Company Number: 2004106748

PATIENT
  Age: 29 Year
  Sex: Male
  Weight: 122.4712 kg

DRUGS (6)
  1. NEURONTIN [Suspect]
     Indication: POST-TRAUMATIC STRESS DISORDER
     Dosage: 900 MG (300 MG, 3 IN 1 D)
     Dates: start: 20000707
  2. HALDOL [Suspect]
  3. RISPERIDONE [Suspect]
  4. SEROQUEL [Concomitant]
  5. METFORMIN HCL [Concomitant]
  6. RISPERIDONE [Concomitant]
     Dosage: 6 MG (3 MG, 2 IN 1 D)

REACTIONS (19)
  - ABNORMAL BEHAVIOUR [None]
  - ACCIDENT [None]
  - AGGRESSION [None]
  - AGITATION [None]
  - DELUSION [None]
  - DEPRESSION [None]
  - DRUG ABUSER [None]
  - DRUG INEFFECTIVE [None]
  - HALLUCINATION, AUDITORY [None]
  - HALLUCINATION, VISUAL [None]
  - HOMICIDAL IDEATION [None]
  - LETHARGY [None]
  - MULTIPLE DRUG OVERDOSE INTENTIONAL [None]
  - PSYCHOTIC DISORDER [None]
  - REFUSAL OF TREATMENT BY PATIENT [None]
  - SOMNOLENCE [None]
  - STRESS [None]
  - SUICIDE ATTEMPT [None]
  - TREATMENT NONCOMPLIANCE [None]
